FAERS Safety Report 25505535 (Version 1)
Quarter: 2025Q3

REPORT INFORMATION
  Report Type: Spontaneous
  Country: US (occurrence: US)
  Receive Date: 20250702
  Receipt Date: 20250702
  Transmission Date: 20251021
  Serious: Yes (Other)
  Sender: AMGEN
  Company Number: US-AMGEN-USASP2025126955

PATIENT

DRUGS (6)
  1. FILGRASTIM [Suspect]
     Active Substance: FILGRASTIM
     Indication: Neutropenia
     Route: 065
  2. RITUXIMAB [Concomitant]
     Active Substance: RITUXIMAB
     Route: 065
  3. INEBILIZUMAB [Concomitant]
     Active Substance: INEBILIZUMAB
  4. OCRELIZUMAB [Concomitant]
     Active Substance: OCRELIZUMAB
  5. OFATUMUMAB [Concomitant]
     Active Substance: OFATUMUMAB
  6. UBLITUXIMAB [Concomitant]
     Active Substance: UBLITUXIMAB

REACTIONS (1)
  - Neutropenia [Unknown]
